FAERS Safety Report 12535666 (Version 1)
Quarter: 2016Q3

REPORT INFORMATION
  Report Type: Spontaneous
  Country: US (occurrence: None)
  Receive Date: 20160706
  Receipt Date: 20160706
  Transmission Date: 20161109
  Serious: Yes (Other)
  Sender: FDA-Public Use
  Company Number: None

PATIENT
  Age: 47 Year
  Sex: Female
  Weight: 75.75 kg

DRUGS (1)
  1. RECLAST [Suspect]
     Active Substance: ZOLEDRONIC ACID
     Indication: OSTEOPOROSIS
     Route: 042
     Dates: start: 20160701, end: 20160701

REACTIONS (5)
  - Muscle spasms [None]
  - Nasopharyngitis [None]
  - Chills [None]
  - Infusion related reaction [None]
  - Malaise [None]

NARRATIVE: CASE EVENT DATE: 20160701
